FAERS Safety Report 5931464-X (Version None)
Quarter: 2008Q4

REPORT INFORMATION
  Report Type: 
  Country: None (occurrence: None)
  Receive Date: 20081024
  Receipt Date: 20081024
  Transmission Date: 20090506
  Serious: No
  Sender: FDA-Public Use
  Company Number: None

PATIENT
  Age: 16 Year
  Sex: Male
  Weight: 99.7913 kg

DRUGS (1)
  1. SYMBYAX [Suspect]
     Indication: DEPRESSION
     Dosage: 1 PILL 1X AT 9PM PO
     Route: 048
     Dates: start: 20081022, end: 20081022

REACTIONS (2)
  - DIZZINESS [None]
  - HOSTILITY [None]
